FAERS Safety Report 4657505-8 (Version None)
Quarter: 2005Q2

REPORT INFORMATION
  Report Type: 
  Country: None (occurrence: None)
  Receive Date: 20050506
  Receipt Date: 20050422
  Transmission Date: 20051028
  Serious: Yes (Hospitalization, Other)
  Sender: FDA-Public Use
  Company Number: 2005-00750

PATIENT
  Age: 69 Year
  Sex: Male
  Weight: 87 kg

DRUGS (11)
  1. VELCADE [Suspect]
     Indication: MULTIPLE MYELOMA
     Dosage: 2.60 MG, INTRAVENOUS
     Route: 042
     Dates: start: 20050318, end: 20050329
  2. NPH INSULIN [Concomitant]
  3. LEVOTHYROXINE SODIUM [Concomitant]
  4. METOPROLOL TARTRATE [Concomitant]
  5. RANITIDINE [Concomitant]
  6. HYTRIN [Concomitant]
  7. OXYCODONE (OXYCODONE) [Concomitant]
  8. VANCOMYCIN [Concomitant]
  9. CEFEPIME (CEFEPIME) [Concomitant]
  10. AREDIA [Concomitant]
  11. LASIX [Concomitant]

REACTIONS (34)
  - ANAPHYLACTIC REACTION [None]
  - ANGIONEUROTIC OEDEMA [None]
  - ATELECTASIS [None]
  - BASE EXCESS INCREASED [None]
  - BLOOD BICARBONATE DECREASED [None]
  - BLOOD CALCIUM DECREASED [None]
  - BLOOD CREATININE DECREASED [None]
  - BLOOD GLUCOSE INCREASED [None]
  - BLOOD PH DECREASED [None]
  - BLOOD POTASSIUM INCREASED [None]
  - BLOOD SODIUM DECREASED [None]
  - BLOOD UREA INCREASED [None]
  - CARBON DIOXIDE DECREASED [None]
  - CARDIAC FAILURE CONGESTIVE [None]
  - CROSS SENSITIVITY REACTION [None]
  - DIASTOLIC DYSFUNCTION [None]
  - EPIGLOTTITIS [None]
  - HAEMATOCHEZIA [None]
  - HAEMATOCRIT DECREASED [None]
  - HAEMOGLOBIN DECREASED [None]
  - HAEMORRHOIDS [None]
  - HYPERSENSITIVITY [None]
  - HYPOXIA [None]
  - JUGULAR VEIN DISTENSION [None]
  - LARYNGEAL OEDEMA [None]
  - PLATELET COUNT DECREASED [None]
  - PLEURAL EFFUSION [None]
  - PNEUMONIA ASPIRATION [None]
  - PULMONARY OEDEMA [None]
  - RENAL FAILURE ACUTE [None]
  - RESPIRATORY DISTRESS [None]
  - STRIDOR [None]
  - TACHYPNOEA [None]
  - WHEEZING [None]
